FAERS Safety Report 23441690 (Version 1)
Quarter: 2024Q1

REPORT INFORMATION
  Report Type: Spontaneous
  Country: CA (occurrence: CA)
  Receive Date: 20240125
  Receipt Date: 20240125
  Transmission Date: 20240409
  Serious: Yes (Hospitalization, Other)
  Sender: FDA-Public Use
  Company Number: CA-OCTA-GAM31123

PATIENT
  Age: 77 Year
  Sex: Female
  Weight: 61 kg

DRUGS (1)
  1. OCTAGAM IMMUNE GLOBULIN (HUMAN) [Suspect]
     Active Substance: HUMAN IMMUNOGLOBULIN G
     Indication: Hypogammaglobulinaemia
     Route: 042
     Dates: start: 20231121, end: 20231121

REACTIONS (5)
  - Dyspnoea [Recovered/Resolved]
  - Tremor [Unknown]
  - Peripheral coldness [Unknown]
  - Pallor [Unknown]
  - Wheezing [Unknown]

NARRATIVE: CASE EVENT DATE: 20231121
